FAERS Safety Report 24352918 (Version 1)
Quarter: 2024Q3

REPORT INFORMATION
  Report Type: Spontaneous
  Country: AE (occurrence: AE)
  Receive Date: 20240923
  Receipt Date: 20240923
  Transmission Date: 20241017
  Serious: Yes (Hospitalization, Other)
  Sender: ELI LILLY AND CO
  Company Number: AE-ELI_LILLY_AND_COMPANY-AE202409009181

PATIENT
  Sex: Male

DRUGS (1)
  1. MOUNJARO [Suspect]
     Active Substance: TIRZEPATIDE
     Indication: Product used for unknown indication
     Dosage: UNK UNK, UNKNOWN
     Route: 065

REACTIONS (6)
  - Road traffic accident [Unknown]
  - Loss of consciousness [Unknown]
  - Dehydration [Unknown]
  - Hypophagia [Unknown]
  - Hypoglycaemia [Unknown]
  - Extra dose administered [Unknown]
